FAERS Safety Report 12912071 (Version 1)
Quarter: 2016Q4

REPORT INFORMATION
  Report Type: Spontaneous
  Country: IT (occurrence: IT)
  Receive Date: 20161104
  Receipt Date: 20161104
  Transmission Date: 20170207
  Serious: Yes (Hospitalization, Other)
  Sender: FDA-Public Use
  Company Number: IT-MYLANLABS-2016M1046374

PATIENT

DRUGS (2)
  1. FENOBARBITALE SODICO [Suspect]
     Active Substance: PHENOBARBITAL SODIUM
     Indication: DRUG WITHDRAWAL CONVULSIONS
     Dosage: UNK
  2. VANCOMYCIN [Suspect]
     Active Substance: VANCOMYCIN
     Indication: CLOSTRIDIUM DIFFICILE COLITIS
     Dosage: UNK

REACTIONS (7)
  - Dermatitis exfoliative [Recovering/Resolving]
  - Skin lesion [Unknown]
  - Oedema peripheral [Recovering/Resolving]
  - Rash maculo-papular [Unknown]
  - Drug reaction with eosinophilia and systemic symptoms [Unknown]
  - Pyrexia [Recovered/Resolved]
  - Confusional state [Unknown]
